FAERS Safety Report 21691019 (Version 1)
Quarter: 2022Q4

REPORT INFORMATION
  Report Type: Report from Study
  Country: US (occurrence: US)
  Receive Date: 20221207
  Receipt Date: 20221207
  Transmission Date: 20230112
  Serious: Yes (Other)
  Sender: FDA-Public Use
  Company Number: US-AMGEN-USASL2022195681

PATIENT
  Age: 58 Year
  Sex: Female

DRUGS (2)
  1. ENBREL [Suspect]
     Active Substance: ETANERCEPT
     Indication: Rheumatoid arthritis
     Dosage: 50 MILLIGRAM
     Route: 065
     Dates: start: 2022
  2. ENBREL [Suspect]
     Active Substance: ETANERCEPT
     Dosage: 50 MILLIGRAM
     Route: 065
     Dates: start: 20221110

REACTIONS (9)
  - Uterine haemorrhage [Unknown]
  - Endometrial thickening [Unknown]
  - Uterine pain [Unknown]
  - Kidney infection [Unknown]
  - Cystitis [Unknown]
  - Vaginal infection [Unknown]
  - Gastrointestinal infection [Not Recovered/Not Resolved]
  - Vulvovaginal mycotic infection [Unknown]
  - Urinary tract infection [Unknown]

NARRATIVE: CASE EVENT DATE: 20220101
